FAERS Safety Report 16859112 (Version 1)
Quarter: 2019Q3

REPORT INFORMATION
  Report Type: Other
  Country: US (occurrence: US)
  Receive Date: 20190926
  Receipt Date: 20190926
  Transmission Date: 20191005
  Serious: No
  Sender: FDA-Public Use
  Company Number: US-VERASTEM-2019-00093

PATIENT

DRUGS (3)
  1. COPIKTRA [Suspect]
     Active Substance: DUVELISIB
     Indication: WALDENSTROM^S MACROGLOBULINAEMIA
     Dosage: 25 MG, BID
     Route: 048
     Dates: start: 20190606
  2. OFATUMUMAB [Concomitant]
     Active Substance: OFATUMUMAB
     Indication: PRODUCT USED FOR UNKNOWN INDICATION
     Dosage: UNK
  3. VELCADE [Concomitant]
     Active Substance: BORTEZOMIB
     Indication: PRODUCT USED FOR UNKNOWN INDICATION
     Dosage: UNK

REACTIONS (4)
  - Product use in unapproved indication [Not Recovered/Not Resolved]
  - Diarrhoea [Not Recovered/Not Resolved]
  - Dry skin [Not Recovered/Not Resolved]
  - Constipation [Not Recovered/Not Resolved]

NARRATIVE: CASE EVENT DATE: 2019
